FAERS Safety Report 19827407 (Version 1)
Quarter: 2021Q3

REPORT INFORMATION
  Report Type: Spontaneous
  Country: US (occurrence: US)
  Receive Date: 20210913
  Receipt Date: 20210913
  Transmission Date: 20211014
  Serious: Yes (Hospitalization)
  Sender: FDA-Public Use
  Company Number: None

PATIENT
  Age: 61 Year
  Sex: Male
  Weight: 117 kg

DRUGS (2)
  1. ISOFLURANE (ISOFLURANE 99.9% LIQUID, INHL) [Suspect]
     Active Substance: ISOFLURANE
     Indication: CARDIOVASCULAR DISORDER
     Dates: start: 20210803, end: 20210803
  2. SUCCINYLCHOLINE (SUCCINYLCHOLINE CHLORIDE 20MG/ML INJ) [Suspect]
     Active Substance: SUCCINYLCHOLINE CHLORIDE
     Dates: start: 20210803, end: 20210803

REACTIONS (1)
  - Hypotension [None]

NARRATIVE: CASE EVENT DATE: 20210803
